FAERS Safety Report 9507740 (Version 1)
Quarter: 2013Q3

REPORT INFORMATION
  Report Type: Spontaneous
  Country: GB (occurrence: None)
  Receive Date: 20130905
  Receipt Date: 20130905
  Transmission Date: 20140515
  Serious: Yes (Hospitalization)
  Sender: FDA-Public Use
  Company Number: VENL20130004

PATIENT
  Age: 55 Year
  Sex: Female

DRUGS (2)
  1. VENLAFAXINE HCL [Suspect]
     Route: 048
  2. TAMOXIFEN(TAMOXIF-?UNKNOWN - EN) (UNKNOWN) (TAMOXIFEN) [Concomitant]

REACTIONS (8)
  - Cerebral vasoconstriction [None]
  - Anterograde amnesia [None]
  - Subarachnoid haemorrhage [None]
  - Somnolence [None]
  - Disorientation [None]
  - Grand mal convulsion [None]
  - Balance disorder [None]
  - Aphasia [None]
